FAERS Safety Report 6864142-3 (Version None)
Quarter: 2010Q3

REPORT INFORMATION
  Report Type: 
  Country: None (occurrence: None)
  Receive Date: 20100721
  Receipt Date: 20080318
  Transmission Date: 20110219
  Serious: No
  Sender: FDA-Public Use
  Company Number: CA-PFIZER INC-2008025873

PATIENT
  Sex: Male

DRUGS (1)
  1. VARENICLINE TARTRATE [Suspect]

REACTIONS (1)
  - ANXIETY [None]
